FAERS Safety Report 9011592 (Version 1)
Quarter: 2013Q1

REPORT INFORMATION
  Report Type: Spontaneous
  Country: US (occurrence: US)
  Receive Date: 20130108
  Receipt Date: 20130108
  Transmission Date: 20140127
  Serious: No
  Sender: FDA-Public Use
  Company Number: US-FOUGERA-2012FO001052

PATIENT
  Age: 14 Year
  Sex: Female
  Weight: 54.43 kg

DRUGS (1)
  1. SULFACETAMIDE SODIUM [Suspect]
     Indication: ACNE
     Route: 061
     Dates: start: 20111014, end: 20111114

REACTIONS (1)
  - Rash [Recovered/Resolved]
